FAERS Safety Report 11117195 (Version 5)
Quarter: 2019Q1

REPORT INFORMATION
  Report Type: Spontaneous
  Country: US (occurrence: US)
  Receive Date: 20150515
  Receipt Date: 20190113
  Transmission Date: 20190417
  Serious: Yes (Hospitalization, Other)
  Sender: FDA-Public Use
  Company Number: US-PFIZER INC-2015164352

PATIENT
  Age: 67 Year
  Sex: Female
  Weight: 62 kg

DRUGS (2)
  1. GABAPENTIN. [Suspect]
     Active Substance: GABAPENTIN
     Dosage: UNK [300MG, 1 IN THE MORNING AND THEN EVERY 1.5 HOURS ALL DAY AND THEN ONE BEFORE BED]
     Route: 048
     Dates: start: 2017
  2. GABAPENTIN. [Suspect]
     Active Substance: GABAPENTIN
     Indication: SEIZURE
     Dosage: UNK, 12 PILLS A DAY

REACTIONS (4)
  - Drug ineffective [Unknown]
  - Pulmonary oedema [Unknown]
  - Giardia test positive [Unknown]
  - Cardiomegaly [Unknown]
